FAERS Safety Report 7799509-2 (Version None)
Quarter: 2011Q4

REPORT INFORMATION
  Report Type: 
  Country: None (occurrence: None)
  Receive Date: 20111006
  Receipt Date: 20110930
  Transmission Date: 20120403
  Serious: Yes (Other)
  Sender: FDA-Public Use
  Company Number: BR-SANOFI-AVENTIS-2011SA064486

PATIENT
  Sex: Male
  Weight: 62 kg

DRUGS (8)
  1. LANTUS [Suspect]
     Route: 058
  2. MICARDIS [Concomitant]
     Indication: HYPERTENSION
     Route: 048
  3. AUTOPEN 24 [Concomitant]
     Indication: DEVICE THERAPY
  4. METOPROLOL SUCCINATE [Concomitant]
     Route: 048
  5. METFORMIN HCL [Concomitant]
     Route: 048
  6. CLOPIDOGREL [Concomitant]
     Route: 048
  7. INSULIN [Concomitant]
     Route: 058
  8. ATORVASTATIN [Concomitant]
     Route: 048

REACTIONS (7)
  - HYPERHIDROSIS [None]
  - HYPOGLYCAEMIA [None]
  - CATARACT [None]
  - ISCHAEMIA [None]
  - VISUAL ACUITY REDUCED [None]
  - VEIN DISORDER [None]
  - TREMOR [None]
